FAERS Safety Report 8141310-4 (Version None)
Quarter: 2012Q1

REPORT INFORMATION
  Report Type: 
  Country: None (occurrence: None)
  Receive Date: 20120216
  Receipt Date: 20120206
  Transmission Date: 20120608
  Serious: Yes (Other)
  Sender: FDA-Public Use
  Company Number: CH-ELI_LILLY_AND_COMPANY-CH201202001095

PATIENT
  Age: 54 Year
  Sex: Female
  Weight: 55 kg

DRUGS (2)
  1. CYMBALTA [Suspect]
     Indication: DEPRESSION
     Dosage: 60 MG, QD
     Dates: start: 20090516, end: 20110913
  2. CYMBALTA [Suspect]
     Dosage: 60 MG, QD
     Dates: start: 20110916

REACTIONS (4)
  - SUICIDAL IDEATION [None]
  - DRUG DOSE OMISSION [None]
  - WITHDRAWAL SYNDROME [None]
  - DEPRESSION [None]
